FAERS Safety Report 25125336 (Version 1)
Quarter: 2025Q1

REPORT INFORMATION
  Report Type: Spontaneous
  Country: US (occurrence: US)
  Receive Date: 20250326
  Receipt Date: 20250326
  Transmission Date: 20250408
  Serious: Yes (Hospitalization, Other)
  Sender: LEXICON PHARMACEUTICALS
  Company Number: US-LEX-000712

PATIENT
  Age: 76 Year
  Sex: Female
  Weight: 100.24 kg

DRUGS (2)
  1. INPEFA [Suspect]
     Active Substance: SOTAGLIFLOZIN
     Indication: Product used for unknown indication
     Route: 048
     Dates: start: 20240804
  2. METHOTREXATE [Suspect]
     Active Substance: METHOTREXATE

REACTIONS (6)
  - Loss of consciousness [Unknown]
  - Urinary retention [Unknown]
  - Weight decreased [Unknown]
  - Hospitalisation [Unknown]
  - Limb injury [Unknown]
  - Oral mucosal blistering [Unknown]

NARRATIVE: CASE EVENT DATE: 20250319
